FAERS Safety Report 5908806-4 (Version None)
Quarter: 2008Q3

REPORT INFORMATION
  Report Type: 
  Country: None (occurrence: None)
  Receive Date: 20080930
  Receipt Date: 20080915
  Transmission Date: 20090109
  Serious: Yes (Other)
  Sender: FDA-Public Use
  Company Number: 238782J08USA

PATIENT
  Age: 45 Year
  Sex: Male
  Weight: 72.6 kg

DRUGS (4)
  1. REBIF [Suspect]
     Indication: MULTIPLE SCLEROSIS
     Dosage: 44 MCG, 3 IN 1 WEEKS, SUBCUTANEOUS
     Route: 058
     Dates: start: 20060105
  2. LEVOTHYROXINE (LEVOTHYROXINE /00068001/) [Concomitant]
  3. IBUPROFEN [Concomitant]
  4. CLONAZEPAM [Concomitant]

REACTIONS (2)
  - HYPOTHYROIDISM [None]
  - TUMOUR NECROSIS [None]
